FAERS Safety Report 6617104-5 (Version None)
Quarter: 2010Q1

REPORT INFORMATION
  Report Type: 
  Country: None (occurrence: None)
  Receive Date: 20100307
  Receipt Date: 20091124
  Transmission Date: 20100710
  Serious: No
  Sender: FDA-Public Use
  Company Number: GB-BAYER-200710406BNE

PATIENT
  Sex: Male

DRUGS (1)
  1. CIPROFLOXACIN [Suspect]
     Indication: CYSTIC FIBROSIS
     Route: 065

REACTIONS (1)
  - SCHIZOPHRENIA [None]
